FAERS Safety Report 9558534 (Version 1)
Quarter: 2013Q3

REPORT INFORMATION
  Report Type: Spontaneous
  Country: US (occurrence: US)
  Receive Date: 20130926
  Receipt Date: 20130926
  Transmission Date: 20140515
  Serious: No
  Sender: FDA-Public Use
  Company Number: US-BAXTER-2013BAX037303

PATIENT
  Sex: 0

DRUGS (1)
  1. CLINIMIX? -SULFITE-FREE (AMINO ACID IN DEXTROSE) INJECTIONS [Suspect]
     Indication: PRODUCT USED FOR UNKNOWN INDICATION
     Route: 042

REACTIONS (2)
  - Accidental exposure to product [Unknown]
  - No adverse event [Recovered/Resolved]
